FAERS Safety Report 5422068-6 (Version None)
Quarter: 2007Q3

REPORT INFORMATION
  Report Type: 
  Country: None (occurrence: None)
  Receive Date: 20070821
  Receipt Date: 20070821
  Transmission Date: 20080115
  Serious: Yes (Hospitalization)
  Sender: FDA-Public Use
  Company Number: None

PATIENT
  Sex: Male
  Weight: 66 kg

DRUGS (8)
  1. CETUXIMAB [Suspect]
     Indication: NEOPLASM MALIGNANT
     Dosage: 400MG/M2 ID 250 MG WEEKLY I.V.
     Route: 042
     Dates: start: 20070807
  2. OXALIPLATIN [Suspect]
     Indication: NEOPLASM MALIGNANT
     Dosage: 130MG/M2 Q 21 DAYS I.V.
     Route: 042
     Dates: start: 20070807
  3. CAPECITABINE [Concomitant]
  4. NARCO [Concomitant]
  5. VITAMIN CAP [Concomitant]
  6. PRILOSEC [Concomitant]
  7. JEVITY [Concomitant]
  8. ATIVAN [Concomitant]

REACTIONS (3)
  - DIARRHOEA [None]
  - NAUSEA [None]
  - VOMITING [None]
